FAERS Safety Report 17400329 (Version 2)
Quarter: 2020Q2

REPORT INFORMATION
  Report Type: Spontaneous
  Country: US (occurrence: US)
  Receive Date: 20200211
  Receipt Date: 20200430
  Transmission Date: 20200713
  Serious: No
  Sender: FDA-Public Use
  Company Number: US-TEVA-2020-US-1182331

PATIENT
  Age: 22 Year
  Sex: Male

DRUGS (4)
  1. METHYL B12 [Concomitant]
     Active Substance: METHYLCOBALAMIN
  2. NALTREXONE [Concomitant]
     Active Substance: NALTREXONE
     Dosage: LOW DOSE
  3. LEXAPRO [Concomitant]
     Active Substance: ESCITALOPRAM OXALATE
  4. LEUCOVORIN CALCIUM  TEVA [Suspect]
     Active Substance: LEUCOVORIN CALCIUM
     Dosage: DOSE: 50 MG/DAY
     Route: 065
     Dates: start: 20181207, end: 20200129

REACTIONS (3)
  - Off label use [Unknown]
  - Drug ineffective [Unknown]
  - Antibody test abnormal [Unknown]
